FAERS Safety Report 20761102 (Version 1)
Quarter: 2022Q2

REPORT INFORMATION
  Report Type: Spontaneous
  Country: US (occurrence: US)
  Receive Date: 20220428
  Receipt Date: 20220428
  Transmission Date: 20220720
  Serious: Yes (Other)
  Sender: FDA-Public Use
  Company Number: US-SA-SAC20220427000769

PATIENT
  Age: 62 Year
  Sex: Female

DRUGS (2)
  1. ZANTAC [Suspect]
     Active Substance: RANITIDINE HYDROCHLORIDE
     Indication: Gastrooesophageal reflux disease
     Dosage: UNK UNK, QD
     Dates: start: 199504, end: 201704
  2. ZANTAC [Suspect]
     Active Substance: RANITIDINE HYDROCHLORIDE
     Indication: Dyspepsia

REACTIONS (1)
  - Gallbladder cancer stage III [Unknown]

NARRATIVE: CASE EVENT DATE: 20170401
